FAERS Safety Report 8887878 (Version 2)
Quarter: 2012Q4

REPORT INFORMATION
  Report Type: 
  Country: US (occurrence: US)
  Receive Date: 20121106
  Receipt Date: 20121114
  Transmission Date: 20130627
  Serious: Yes (Hospitalization)
  Sender: FDA-Public Use
  Company Number: US-BIOGENIDEC-2012BI049376

PATIENT
  Age: 41 Year
  Sex: Female

DRUGS (2)
  1. TYSABRI [Suspect]
     Indication: MULTIPLE SCLEROSIS
     Route: 042
     Dates: start: 20070223, end: 20071128
  2. TYSABRI [Suspect]
     Indication: MULTIPLE SCLEROSIS
     Route: 042
     Dates: start: 20080624

REACTIONS (11)
  - Gastritis haemorrhagic [Not Recovered/Not Resolved]
  - Oesophageal disorder [Not Recovered/Not Resolved]
  - Hypertension [Recovered/Resolved]
  - Tachycardia [Recovered/Resolved]
  - Hepatic enzyme increased [Recovered/Resolved]
  - Cardiac disorder [Unknown]
  - Vomiting [Recovered/Resolved]
  - Diarrhoea [Recovered/Resolved]
  - Pyrexia [Recovered/Resolved]
  - Candidiasis [Not Recovered/Not Resolved]
  - Diabetes mellitus [Unknown]
